FAERS Safety Report 8246456-8 (Version None)
Quarter: 2012Q1

REPORT INFORMATION
  Report Type: 
  Country: None (occurrence: None)
  Receive Date: 20120329
  Receipt Date: 20120329
  Transmission Date: 20120608
  Serious: No
  Sender: FDA-Public Use
  Company Number: None

PATIENT

DRUGS (1)
  1. JUNIOR STRENGTH IBUPROFEN [Suspect]
     Indication: HEADACHE
     Route: 048
     Dates: start: 20110214

REACTIONS (5)
  - DYSPHAGIA [None]
  - PRURITUS [None]
  - ORAL PRURITUS [None]
  - THROAT IRRITATION [None]
  - TONGUE DISORDER [None]
